FAERS Safety Report 18614280 (Version 1)
Quarter: 2020Q4

REPORT INFORMATION
  Report Type: Spontaneous
  Country: CH (occurrence: CH)
  Receive Date: 20201215
  Receipt Date: 20201215
  Transmission Date: 20210114
  Serious: Yes (Hospitalization, Other)
  Sender: FDA-Public Use
  Company Number: CH-SA-2020SA351952

PATIENT

DRUGS (6)
  1. TRIMIPRAMIN SANDOZ [TRIMIPRAMINE MESILATE] [Concomitant]
     Dosage: UNK
  2. ACIDUM FOLICUM STREULI [Concomitant]
     Active Substance: FOLIC ACID
     Dosage: UNK
  3. CREON [Concomitant]
     Active Substance: PANCRELIPASE AMYLASE\PANCRELIPASE LIPASE\PANCRELIPASE PROTEASE
     Dosage: UNK
  4. PANTOZOL [Concomitant]
     Active Substance: PANTOPRAZOLE SODIUM
     Dosage: UNK
  5. STILNOX [Suspect]
     Active Substance: ZOLPIDEM TARTRATE
     Indication: DEPENDENCE
     Dosage: 300 MG
     Route: 048
     Dates: start: 20200924
  6. METOJECT [Concomitant]
     Active Substance: METHOTREXATE SODIUM
     Dosage: UNK

REACTIONS (2)
  - Pneumonia aspiration [Unknown]
  - Drug dependence [Unknown]

NARRATIVE: CASE EVENT DATE: 20200927
